FAERS Safety Report 9733631 (Version 1)
Quarter: 2013Q4

REPORT INFORMATION
  Report Type: Spontaneous
  Country: US (occurrence: US)
  Receive Date: 20131205
  Receipt Date: 20131205
  Transmission Date: 20140711
  Serious: Yes (Other)
  Sender: FDA-Public Use
  Company Number: US-B.I. PHARMACEUTICALS,INC./RIDGEFIELD-2013-BI-40479GD

PATIENT
  Age: 59 Year
  Sex: Male

DRUGS (1)
  1. PRADAXA [Suspect]
     Indication: ATRIAL FIBRILLATION

REACTIONS (3)
  - Atrial thrombosis [Unknown]
  - Cerebral infarction [Recovered/Resolved]
  - Drug ineffective [Unknown]
